FAERS Safety Report 16377132 (Version 1)
Quarter: 2019Q2

REPORT INFORMATION
  Report Type: Report from Study
  Country: US (occurrence: US)
  Receive Date: 20190531
  Receipt Date: 20190531
  Transmission Date: 20190711
  Serious: Yes (Other)
  Sender: FDA-Public Use
  Company Number: US-ROCHE-2323404

PATIENT
  Age: 62 Year
  Sex: Male

DRUGS (1)
  1. OCREVUS [Suspect]
     Active Substance: OCRELIZUMAB
     Indication: PRIMARY PROGRESSIVE MULTIPLE SCLEROSIS
     Dosage: ONGOING:NO?LAST INFUSION: 09/NOV/2018?ANTICIPATED DATE OF TREATMENT 10/JAN/2019
     Route: 042
     Dates: start: 201805

REACTIONS (5)
  - Hypothermia [Unknown]
  - Brain injury [Unknown]
  - Urinary tract infection [Unknown]
  - Aspiration [Unknown]
  - Dyspnoea [Unknown]

NARRATIVE: CASE EVENT DATE: 201902
